FAERS Safety Report 21082676 (Version 1)
Quarter: 2022Q3

REPORT INFORMATION
  Report Type: Spontaneous
  Country: FR (occurrence: FR)
  Receive Date: 20220714
  Receipt Date: 20220714
  Transmission Date: 20221026
  Serious: Yes (Hospitalization, Other)
  Sender: FDA-Public Use
  Company Number: FR-Intas Spain-000448

PATIENT
  Age: 20 Year
  Sex: Male
  Weight: 85 kg

DRUGS (5)
  1. ACETAMINOPHEN [Interacting]
     Active Substance: ACETAMINOPHEN
     Indication: Product used for unknown indication
     Route: 048
  2. APIXABAN [Interacting]
     Active Substance: APIXABAN
     Indication: Pulmonary embolism
     Route: 048
  3. APIXABAN [Interacting]
     Active Substance: APIXABAN
     Indication: Suicide attempt
  4. BISOPROLOL [Interacting]
     Active Substance: BISOPROLOL
     Indication: Product used for unknown indication
     Route: 048
  5. ZOPICLONE [Interacting]
     Active Substance: ZOPICLONE
     Indication: Product used for unknown indication
     Route: 048

REACTIONS (5)
  - Toxicity to various agents [Unknown]
  - Drug interaction [Unknown]
  - Somnolence [Unknown]
  - Intentional overdose [Unknown]
  - Poisoning deliberate [Unknown]
